FAERS Safety Report 18438327 (Version 1)
Quarter: 2020Q4

REPORT INFORMATION
  Report Type: Spontaneous
  Country: GB (occurrence: GB)
  Receive Date: 20201028
  Receipt Date: 20201028
  Transmission Date: 20210114
  Serious: Yes (Disabling, Other)
  Sender: FDA-Public Use
  Company Number: GB-MYLANLABS-2020M1089884

PATIENT
  Age: 37 Year
  Sex: Male
  Weight: 92.98 kg

DRUGS (2)
  1. MIRTAZAPINE. [Suspect]
     Active Substance: MIRTAZAPINE
     Indication: ANXIETY
     Dosage: 45 MILLIGRAM
     Route: 048
     Dates: start: 20160701, end: 20200801
  2. PROMAZINE [Concomitant]
     Active Substance: PROMAZINE
     Dosage: UNK

REACTIONS (6)
  - Dyspnoea [Unknown]
  - Heart rate increased [Unknown]
  - Dizziness [Unknown]
  - Sleep terror [Recovered/Resolved]
  - Anxiety [Unknown]
  - Sleep apnoea syndrome [Recovered/Resolved]

NARRATIVE: CASE EVENT DATE: 20160701
